FAERS Safety Report 7049447-8 (Version None)
Quarter: 2010Q4

REPORT INFORMATION
  Report Type: 
  Country: None (occurrence: None)
  Receive Date: 20101018
  Receipt Date: 20101007
  Transmission Date: 20110411
  Serious: Yes (Hospitalization)
  Sender: FDA-Public Use
  Company Number: US-JNJFOC-20101002776

PATIENT
  Sex: Female
  Weight: 77.11 kg

DRUGS (6)
  1. REMICADE [Suspect]
     Indication: CROHN'S DISEASE
     Route: 042
  2. ALPRAZOLAM [Concomitant]
     Indication: ANXIETY
     Route: 048
     Dates: start: 20080101
  3. ATENOLOL [Concomitant]
     Indication: HYPERTENSION
     Route: 048
     Dates: start: 20050101
  4. CYMBALTA [Concomitant]
     Indication: DEPRESSION
     Route: 048
     Dates: start: 20050101
  5. DILAUDID [Concomitant]
     Indication: PAIN
     Route: 048
     Dates: start: 20030101
  6. UNSPECIFIED MOUTHWASH [Concomitant]
     Indication: STOMATITIS
     Route: 002
     Dates: start: 20090101

REACTIONS (3)
  - GASTROINTESTINAL OBSTRUCTION [None]
  - NAUSEA [None]
  - RHEUMATOID ARTHRITIS [None]
